FAERS Safety Report 25702373 (Version 2)
Quarter: 2025Q4

REPORT INFORMATION
  Report Type: Spontaneous
  Country: EU (occurrence: EU)
  Receive Date: 20250819
  Receipt Date: 20251127
  Transmission Date: 20260118
  Serious: Yes (Other)
  Sender: SANDOZ
  Company Number: EU-ROCHE-10000357463

PATIENT
  Age: 21 Year
  Sex: Male

DRUGS (14)
  1. ALPRAZOLAM [Suspect]
     Active Substance: ALPRAZOLAM
     Indication: Product used for unknown indication
     Dosage: STRENGTH 0.5 MG, 4 TO 6 TABLETS CAN GO UP TO 4MG/ DAY
     Route: 048
  2. BROMAZEPAM [Suspect]
     Active Substance: BROMAZEPAM
     Indication: Product used for unknown indication
     Dosage: UNK, REPORTED AS LEXOMIL
     Route: 048
  3. COCAINE [Suspect]
     Active Substance: COCAINE
     Indication: Product used for unknown indication
     Dosage: 0.3-1.2 G.DAY
     Route: 045
  4. CODEINE [Suspect]
     Active Substance: CODEINE
     Indication: Product used for unknown indication
     Dosage: A SMALL BOTTLE EVERY 3-4 DAYS
     Route: 048
  5. DIAZEPAM [Suspect]
     Active Substance: DIAZEPAM
     Indication: Product used for unknown indication
     Dosage: 6-7 TABLETS PER DAY (10 MG)`
     Route: 048
  6. DIHYDROCODEINE BITARTRATE [Suspect]
     Active Substance: DIHYDROCODEINE BITARTRATE
     Indication: Product used for unknown indication
     Dosage: 1 FLACON OF 300ML/2HOURS, UNK
     Route: 048
  7. IXPRIM [Suspect]
     Active Substance: ACETAMINOPHEN\TRAMADOL HYDROCHLORIDE
     Indication: Product used for unknown indication
     Dosage: 37 MILLIGRAM IN,UNK
     Route: 048
  8. MIDOMAFETAMINE [Suspect]
     Active Substance: MIDOMAFETAMINE
     Indication: Product used for unknown indication
     Dosage: UNK
     Route: 065
     Dates: start: 2016
  9. MORPHINE [Suspect]
     Active Substance: MORPHINE
     Indication: Product used for unknown indication
     Dosage: 30 MG
     Route: 048
  10. NITROUS OXIDE [Suspect]
     Active Substance: NITROUS OXIDE
     Indication: Product used for unknown indication
     Dosage: 4-15 BOTTLES (MAX 6)
     Route: 055
  11. OXYCODONE [Suspect]
     Active Substance: OXYCODONE
     Indication: Product used for unknown indication
     Dosage: 30-80MG/DAY
     Route: 048
  12. PROMETHAZINE [Suspect]
     Active Substance: PROMETHAZINE HYDROCHLORIDE
     Indication: Product used for unknown indication
     Dosage: UNK
     Route: 065
  13. TRAMADOL [Suspect]
     Active Substance: TRAMADOL
     Indication: Product used for unknown indication
     Dosage: 150 MG IN 1 DAY
     Route: 048
  14. HERBALS\TETRAHYDROCANNABINOL UNSPECIFIED [Suspect]
     Active Substance: HERBALS\TETRAHYDROCANNABINOL UNSPECIFIED
     Indication: Product used for unknown indication
     Dosage: 1 TO 8 JOINTS/DAY DOSED AT 1.5-2G
     Route: 055

REACTIONS (8)
  - Motor dysfunction [Recovering/Resolving]
  - Sensory loss [Recovering/Resolving]
  - Drug dependence [Recovering/Resolving]
  - Gas poisoning [Recovering/Resolving]
  - Intentional product misuse [Unknown]
  - Substance use [Recovering/Resolving]
  - Formication [Recovering/Resolving]
  - Limb discomfort [Recovering/Resolving]
